FAERS Safety Report 12705796 (Version 21)
Quarter: 2017Q2

REPORT INFORMATION
  Report Type: Spontaneous
  Country: TW (occurrence: TW)
  Receive Date: 20160901
  Receipt Date: 20170411
  Transmission Date: 20170830
  Serious: Yes (Other)
  Sender: FDA-Public Use
  Company Number: TW-PFIZER INC-2014331536

PATIENT
  Age: 47 Year
  Sex: Male

DRUGS (1)
  1. TORISEL [Suspect]
     Active Substance: TEMSIROLIMUS
     Indication: RENAL CELL CARCINOMA
     Dosage: 30 MG/1.2 ML, WEEKLY
     Route: 042
     Dates: start: 20141126, end: 20170302

REACTIONS (41)
  - Myalgia [Not Recovered/Not Resolved]
  - Hypertriglyceridaemia [Not Recovered/Not Resolved]
  - Back pain [Not Recovered/Not Resolved]
  - Rash [Not Recovered/Not Resolved]
  - Headache [Not Recovered/Not Resolved]
  - Bacterial infection [Recovering/Resolving]
  - Somnolence [Not Recovered/Not Resolved]
  - Varicocele [Not Recovered/Not Resolved]
  - Nail disorder [Not Recovered/Not Resolved]
  - Blood urea increased [Not Recovered/Not Resolved]
  - Bone pain [Not Recovered/Not Resolved]
  - Alanine aminotransferase increased [Not Recovered/Not Resolved]
  - Diarrhoea [Not Recovered/Not Resolved]
  - Hypercalcaemia [Recovered/Resolved]
  - Hypertension [Not Recovered/Not Resolved]
  - Pain [Not Recovered/Not Resolved]
  - Pruritus [Not Recovered/Not Resolved]
  - Hyperglycaemia [Not Recovered/Not Resolved]
  - Rash maculo-papular [Not Recovered/Not Resolved]
  - Toothache [Not Recovered/Not Resolved]
  - Vision blurred [Not Recovered/Not Resolved]
  - Hyperuricaemia [Not Recovered/Not Resolved]
  - Erythema [Not Recovered/Not Resolved]
  - Groin pain [Not Recovered/Not Resolved]
  - Joint swelling [Not Recovered/Not Resolved]
  - Arthralgia [Not Recovered/Not Resolved]
  - Aspartate aminotransferase increased [Not Recovered/Not Resolved]
  - Weight decreased [Not Recovered/Not Resolved]
  - Local swelling [Not Recovered/Not Resolved]
  - Blood creatine increased [Not Recovered/Not Resolved]
  - Cyst [Not Recovered/Not Resolved]
  - Fall [Not Recovered/Not Resolved]
  - Disease progression [Not Recovered/Not Resolved]
  - Blindness unilateral [Recovering/Resolving]
  - Pyrexia [Not Recovered/Not Resolved]
  - Decreased appetite [Not Recovered/Not Resolved]
  - Blood cholesterol increased [Not Recovered/Not Resolved]
  - Peripheral swelling [Not Recovered/Not Resolved]
  - Blood lactate dehydrogenase increased [Not Recovered/Not Resolved]
  - Vomiting [Not Recovered/Not Resolved]
  - Renal cell carcinoma [Not Recovered/Not Resolved]

NARRATIVE: CASE EVENT DATE: 2014
